FAERS Safety Report 18399756 (Version 1)
Quarter: 2020Q4

REPORT INFORMATION
  Report Type: Spontaneous
  Country: US (occurrence: US)
  Receive Date: 20201019
  Receipt Date: 20201019
  Transmission Date: 20210114
  Serious: No
  Sender: FDA-Public Use
  Company Number: US-ALLERGAN-2011560US

PATIENT
  Age: 65 Year
  Sex: Male

DRUGS (5)
  1. VRAYLAR [Suspect]
     Active Substance: CARIPRAZINE
     Indication: BIPOLAR DISORDER
     Dosage: 1.5 MG, QOD
     Route: 048
     Dates: start: 20190719
  2. ABILIFY [Concomitant]
     Active Substance: ARIPIPRAZOLE
     Indication: BIPOLAR DISORDER
     Route: 048
  3. LATUDA [Concomitant]
     Active Substance: LURASIDONE HYDROCHLORIDE
     Indication: BIPOLAR DISORDER
     Route: 048
  4. LAMOTRIGINE. [Concomitant]
     Active Substance: LAMOTRIGINE
     Indication: BIPOLAR DISORDER
     Route: 048
  5. LITHIUM. [Concomitant]
     Active Substance: LITHIUM
     Indication: BIPOLAR DISORDER
     Route: 048

REACTIONS (2)
  - Off label use [Unknown]
  - Akathisia [Recovered/Resolved]

NARRATIVE: CASE EVENT DATE: 20190719
